FAERS Safety Report 5892383-0 (Version None)
Quarter: 2008Q3

REPORT INFORMATION
  Report Type: 
  Country: None (occurrence: None)
  Receive Date: 20080918
  Receipt Date: 20080918
  Transmission Date: 20090109
  Serious: No
  Sender: FDA-Public Use
  Company Number: None

PATIENT
  Sex: Female

DRUGS (1)
  1. PURELL GOJO INDUSTRIES [Suspect]
     Indication: INFECTION PROPHYLAXIS
     Dosage: MANY YEARS

REACTIONS (3)
  - ACCIDENTAL EXPOSURE [None]
  - DEVICE MALFUNCTION [None]
  - EYE IRRITATION [None]
